FAERS Safety Report 8139313-9 (Version None)
Quarter: 2012Q1

REPORT INFORMATION
  Report Type: 
  Country: None (occurrence: None)
  Receive Date: 20120215
  Receipt Date: 20120207
  Transmission Date: 20120608
  Serious: Yes (Hospitalization, Other)
  Sender: FDA-Public Use
  Company Number: PHHY2012PL010337

PATIENT
  Age: 28 Year
  Sex: Male

DRUGS (2)
  1. ACETAMINOPHEN [Suspect]
     Indication: PHARYNGITIS
  2. AMOXICILLIN [Suspect]
     Indication: PHARYNGITIS
     Dosage: 1500 MG, DAILY

REACTIONS (7)
  - PYREXIA [None]
  - LIVER INJURY [None]
  - HERPES SIMPLEX [None]
  - RASH [None]
  - SPLENOMEGALY [None]
  - HEPATOMEGALY [None]
  - NAUSEA [None]
